FAERS Safety Report 14166149 (Version 1)
Quarter: 2017Q4

REPORT INFORMATION
  Report Type: Spontaneous
  Country: US (occurrence: US)
  Receive Date: 20171106
  Receipt Date: 20171106
  Transmission Date: 20180321
  Serious: No
  Sender: FDA-Public Use
  Company Number: None

PATIENT
  Age: 118 Year

DRUGS (2)
  1. HEPARIN/0.9% SODIUM CHLORIDE [Suspect]
     Active Substance: HEPARIN SODIUM\SODIUM CHLORIDE
     Dosage: STRENGTH 1000 UNITS/500 ML ML MILLITRES?          OTHER FREQUENCY:N/A;?
     Dates: start: 20171103, end: 20171103
  2. MANNITOL INJECTION 20% [Suspect]
     Active Substance: MANNITOL
     Dates: start: 20171103, end: 20171103

REACTIONS (2)
  - Product label on wrong product [None]
  - Product outer packaging issue [None]

NARRATIVE: CASE EVENT DATE: 20171103
